FAERS Safety Report 9245589 (Version 1)
Quarter: 2013Q1

REPORT INFORMATION
  Report Type: Spontaneous
  Country: US (occurrence: None)
  Receive Date: 20121130
  Receipt Date: 20121130
  Transmission Date: 20140127
  Serious: No
  Sender: FDA-Public Use
  Company Number: 1202USA04029

PATIENT
  Age: 89 Year
  Sex: Female
  Weight: 57.6 kg

DRUGS (4)
  1. FOSAMAX (ALENDRONATE SODIUM) [Suspect]
     Indication: BONE DISORDER
     Route: 048
     Dates: start: 200805, end: 201202
  2. PRILOSEC [Concomitant]
  3. MK-0805(FUROSEMIDE) [Concomitant]
  4. COUGH, COLD, AND FLU THERAPIES [Concomitant]

REACTIONS (2)
  - Overdose [None]
  - Pain in jaw [None]
